FAERS Safety Report 8372727-0 (Version None)
Quarter: 2012Q2

REPORT INFORMATION
  Report Type: 
  Country: None (occurrence: None)
  Receive Date: 20120521
  Receipt Date: 20120507
  Transmission Date: 20120825
  Serious: Yes (Death, Hospitalization)
  Sender: FDA-Public Use
  Company Number: BE-MYLANLABS-2012S1009678

PATIENT
  Age: 24 Year
  Sex: Male

DRUGS (4)
  1. DOMPERIDONE [Suspect]
     Indication: INTENTIONAL OVERDOSE
     Dosage: 5 TABLETS OF DOMPERIDONE 10MG
     Route: 048
  2. CHLOROQUINE PHOSPHATE [Suspect]
     Indication: INTENTIONAL OVERDOSE
     Dosage: 58 TABLETS OF CHLOROQUINE 250MG
     Route: 048
  3. MIDAZOLAM [Suspect]
     Indication: INTENTIONAL OVERDOSE
     Dosage: 20 TABLETS OF MIDAZOLAM 7.5MG
     Route: 048
  4. ONDANSETRON [Suspect]
     Indication: INTENTIONAL OVERDOSE
     Dosage: 10 TABLETS OF ONDANSETRON 4MG
     Route: 048

REACTIONS (7)
  - LOSS OF CONSCIOUSNESS [None]
  - PULSELESS ELECTRICAL ACTIVITY [None]
  - TOXICITY TO VARIOUS AGENTS [None]
  - VENTRICULAR FIBRILLATION [None]
  - VENTRICULAR TACHYCARDIA [None]
  - INTENTIONAL OVERDOSE [None]
  - BRAIN DEATH [None]
